FAERS Safety Report 6274882-5 (Version None)
Quarter: 2009Q3

REPORT INFORMATION
  Report Type: 
  Country: None (occurrence: None)
  Receive Date: 20090717
  Receipt Date: 20090704
  Transmission Date: 20100115
  Serious: Yes (Death, Other)
  Sender: FDA-Public Use
  Company Number: ADE2009-0720

PATIENT
  Age: 63 Year
  Sex: Male

DRUGS (4)
  1. GABAPENTIN [Suspect]
     Indication: NEURALGIA
  2. BUPIVACAINE HYDROCHLORIDE [Suspect]
     Indication: NEURALGIA
     Dosage: 13ML, DAILY, EPIDURAL
     Route: 008
  3. CLONIDINE [Suspect]
     Indication: NEURALGIA
     Dosage: 450MCG-EPIDURAL
     Route: 008
  4. MORPHINE HCL ELIXIR [Suspect]
     Indication: NEURALGIA
     Dosage: 10-60MG-DAILY-EPIDURAL
     Route: 008

REACTIONS (3)
  - DRUG INEFFECTIVE [None]
  - DRUG TOXICITY [None]
  - PROCTALGIA [None]
